FAERS Safety Report 12777892 (Version 1)
Quarter: 2016Q3

REPORT INFORMATION
  Report Type: Spontaneous
  Country: US (occurrence: US)
  Receive Date: 20160924
  Receipt Date: 20160924
  Transmission Date: 20161109
  Serious: No
  Sender: FDA-Public Use
  Company Number: US-JAZZ-2016-US-010800

PATIENT
  Sex: Female

DRUGS (29)
  1. MELATONIN [Concomitant]
     Active Substance: MELATONIN
  2. IRON [Concomitant]
     Active Substance: IRON
  3. WELLBUTRIN [Concomitant]
     Active Substance: BUPROPION HYDROCHLORIDE
  4. ALLEGRA [Concomitant]
     Active Substance: FEXOFENADINE HYDROCHLORIDE
  5. SINGULAIR [Concomitant]
     Active Substance: MONTELUKAST SODIUM
  6. XYREM [Suspect]
     Active Substance: SODIUM OXYBATE
     Dosage: 4.5 G, BID
     Route: 048
     Dates: start: 201105
  7. PANTOPRAZOLE SODIUM DR [Concomitant]
     Active Substance: PANTOPRAZOLE SODIUM
  8. XYREM [Suspect]
     Active Substance: SODIUM OXYBATE
     Dosage: 4.5 G, BID
     Route: 048
     Dates: start: 200812
  9. AMLODIPINE BESYLATE. [Concomitant]
     Active Substance: AMLODIPINE BESYLATE
  10. ASPIRIN EC [Concomitant]
     Active Substance: ASPIRIN
  11. ESTRACE [Concomitant]
     Active Substance: ESTRADIOL
  12. FLONASE [Concomitant]
     Active Substance: FLUTICASONE PROPIONATE
  13. XYREM [Suspect]
     Active Substance: SODIUM OXYBATE
     Indication: NARCOLEPSY
     Dosage: 3 G, BID
     Route: 048
     Dates: start: 200605, end: 2008
  14. VITAMIN D [Concomitant]
     Active Substance: CHOLECALCIFEROL
  15. FISH OIL [Concomitant]
     Active Substance: FISH OIL
  16. NUVIGIL [Concomitant]
     Active Substance: ARMODAFINIL
  17. NORTRIPTYLINE HCL [Concomitant]
     Active Substance: NORTRIPTYLINE HYDROCHLORIDE
  18. HYDROCODONE/ACETAMINOPHEN [Concomitant]
     Active Substance: ACETAMINOPHEN\HYDROCODONE
  19. METOPROLOL TARTRATE. [Concomitant]
     Active Substance: METOPROLOL TARTRATE
  20. ESTRATEST [Concomitant]
     Active Substance: ESTROGENS, ESTERIFIED\METHYLTESTOSTERONE
  21. ZELNORM [Concomitant]
     Active Substance: TEGASEROD MALEATE
  22. PREDNISONE. [Concomitant]
     Active Substance: PREDNISONE
  23. LISINOPRIL. [Concomitant]
     Active Substance: LISINOPRIL
  24. SYNTHROID [Concomitant]
     Active Substance: LEVOTHYROXINE SODIUM
  25. OCUVITE [Concomitant]
     Active Substance: VITAMINS
  26. PLAVIX [Concomitant]
     Active Substance: CLOPIDOGREL BISULFATE
  27. PROBIOTIC [Concomitant]
     Active Substance: PROBIOTICS NOS
  28. PROVIGIL [Concomitant]
     Active Substance: MODAFINIL
  29. ZYRTEC [Concomitant]
     Active Substance: CETIRIZINE HYDROCHLORIDE

REACTIONS (1)
  - Abdominal pain [Unknown]
